FAERS Safety Report 6301498-4 (Version None)
Quarter: 2009Q3

REPORT INFORMATION
  Report Type: 
  Country: None (occurrence: None)
  Receive Date: 20090807
  Receipt Date: 20090803
  Transmission Date: 20100115
  Serious: Yes (Hospitalization)
  Sender: FDA-Public Use
  Company Number: B0582026A

PATIENT
  Age: 82 Year
  Sex: Male
  Weight: 83 kg

DRUGS (7)
  1. ARIXTRA [Suspect]
     Indication: DRUG USE FOR UNKNOWN INDICATION
     Dosage: 2.5MG PER DAY
     Route: 058
     Dates: start: 20090422, end: 20090511
  2. VIBRAMYCIN [Suspect]
     Indication: INFECTION PROPHYLAXIS
     Dosage: 100MG TWICE PER DAY
     Route: 048
     Dates: start: 20090506, end: 20090512
  3. ZYLORIC [Concomitant]
     Indication: DRUG USE FOR UNKNOWN INDICATION
     Route: 065
  4. TENORMIN [Concomitant]
     Indication: DRUG USE FOR UNKNOWN INDICATION
     Route: 065
  5. VASTAREL [Concomitant]
     Indication: DRUG USE FOR UNKNOWN INDICATION
     Route: 065
  6. GRANUDOXY [Concomitant]
     Indication: DRUG USE FOR UNKNOWN INDICATION
     Route: 065
  7. ORBENIN CAP [Concomitant]
     Indication: DRUG USE FOR UNKNOWN INDICATION
     Route: 065

REACTIONS (3)
  - ARTHRITIS [None]
  - HAEMATOMA [None]
  - HAEMOLYTIC ANAEMIA [None]
